FAERS Safety Report 12372225 (Version 2)
Quarter: 2016Q2

REPORT INFORMATION
  Report Type: Spontaneous
  Country: JP (occurrence: JP)
  Receive Date: 20160516
  Receipt Date: 20160525
  Transmission Date: 20160815
  Serious: Yes (Death, Other)
  Sender: FDA-Public Use
  Company Number: JP-009507513-1605JPN007672

PATIENT
  Age: 61 Year
  Sex: Male
  Weight: 47.9 kg

DRUGS (10)
  1. DOPAMINE HYDROCHLORIDE. [Concomitant]
     Active Substance: DOPAMINE HYDROCHLORIDE
     Indication: BLOOD PRESSURE DECREASED
     Dosage: 200 ML, QD
     Route: 051
     Dates: start: 20160422, end: 20160502
  2. PREDNISOLONE SODIUM SUCCINATE [Concomitant]
     Active Substance: PREDNISOLONE SODIUM SUCCINATE
     Indication: INTERSTITIAL LUNG DISEASE
     Dosage: 25 MG, QD
     Route: 051
     Dates: start: 20160420, end: 20160502
  3. ACELIO [Concomitant]
     Active Substance: ACETAMINOPHEN
     Indication: ANTIPYRESIS
     Dosage: 800 MG, TID
     Route: 042
     Dates: start: 20160424, end: 20160424
  4. VANCOMYCIN HYDROCHLORIDE. [Concomitant]
     Active Substance: VANCOMYCIN HYDROCHLORIDE
     Indication: BACTERIAL INFECTION
     Dosage: 1 G, BID
     Route: 041
     Dates: start: 20160424, end: 20160501
  5. MEROPENEM. [Concomitant]
     Active Substance: MEROPENEM
     Indication: BACTERIAL INFECTION
     Dosage: 1 G, BID
     Route: 041
     Dates: start: 20160424, end: 20160502
  6. CANCIDAS [Suspect]
     Active Substance: CASPOFUNGIN ACETATE
     Indication: LOWER RESPIRATORY TRACT INFECTION
     Dosage: 70 MG, QD
     Route: 041
     Dates: start: 20160420, end: 20160420
  7. CANCIDAS [Suspect]
     Active Substance: CASPOFUNGIN ACETATE
     Indication: LOWER RESPIRATORY TRACT INFECTION
     Dosage: 50 MG, QD
     Route: 041
     Dates: start: 20160421, end: 20160501
  8. MIDAZOLAM [Concomitant]
     Active Substance: MIDAZOLAM\MIDAZOLAM HYDROCHLORIDE
     Indication: SEDATION
     Dosage: 50 MG, QD
     Route: 051
     Dates: start: 20160420, end: 20160427
  9. CRAVIT [Concomitant]
     Active Substance: LEVOFLOXACIN
     Indication: PNEUMONIA BACTERIAL
     Dosage: 500 MG, QD
     Route: 041
     Dates: start: 20160420, end: 20160425
  10. HEPARIN SODIUM. [Concomitant]
     Active Substance: HEPARIN SODIUM
     Indication: INFECTION
     Dosage: 10 ML, QD
     Route: 051
     Dates: start: 20160424, end: 20160501

REACTIONS (1)
  - Acute interstitial pneumonitis [Fatal]

NARRATIVE: CASE EVENT DATE: 20160424
